FAERS Safety Report 8118173-6 (Version None)
Quarter: 2012Q1

REPORT INFORMATION
  Report Type: 
  Country: None (occurrence: None)
  Receive Date: 20120207
  Receipt Date: 20120131
  Transmission Date: 20120608
  Serious: Yes (Other)
  Sender: FDA-Public Use
  Company Number: JP-JNJFOC-20120202856

PATIENT
  Age: 55 Year
  Sex: Male

DRUGS (6)
  1. DOXORUBICIN HCL [Suspect]
     Indication: KAPOSI'S SARCOMA AIDS RELATED
     Dosage: CYCLES 1-6
     Route: 042
  2. DOXORUBICIN HCL [Suspect]
     Dosage: CYCLES 1-6
     Route: 042
     Dates: start: 20090428
  3. DOXORUBICIN HCL [Suspect]
     Dosage: CYCLES 1-6
     Route: 042
     Dates: end: 20090817
  4. DOXORUBICIN HCL [Suspect]
     Dosage: CYCLES 1-6
     Route: 042
  5. DOXORUBICIN HCL [Suspect]
     Dosage: CYCLES 1-6
     Route: 042
  6. DOXORUBICIN HCL [Suspect]
     Dosage: CYCLES 1-6
     Route: 042

REACTIONS (1)
  - FACE OEDEMA [None]
